FAERS Safety Report 9813209 (Version 1)
Quarter: 2014Q1

REPORT INFORMATION
  Report Type: Spontaneous
  Country: US (occurrence: US)
  Receive Date: 20140113
  Receipt Date: 20140113
  Transmission Date: 20141002
  Serious: No
  Sender: FDA-Public Use
  Company Number: US-TEVA-455639USA

PATIENT
  Age: 16 Year
  Sex: Female
  Weight: 50.39 kg

DRUGS (3)
  1. PARAGARD 380A [Suspect]
     Indication: DIAGNOSTIC PROCEDURE
     Route: 015
     Dates: start: 20131022
  2. ABILIFY [Concomitant]
  3. TOPAMAX [Concomitant]

REACTIONS (1)
  - Device expulsion [Not Recovered/Not Resolved]
